FAERS Safety Report 19200979 (Version 1)
Quarter: 2021Q2

REPORT INFORMATION
  Report Type: Spontaneous
  Country: US (occurrence: US)
  Receive Date: 20210428
  Receipt Date: 20210428
  Transmission Date: 20210717
  Serious: Yes (Disabling, Other)
  Sender: FDA-Public Use
  Company Number: None

PATIENT
  Age: 85 Year
  Sex: Female
  Weight: 66.22 kg

DRUGS (8)
  1. LEVOTHYROXINE 50MCG [Concomitant]
     Active Substance: LEVOTHYROXINE
  2. B12 CYANOBALAMIN 1000MCG TAB [Concomitant]
  3. DILTIAZEM ER (CD) CAPS 120MG [Suspect]
     Active Substance: DILTIAZEM
     Dosage: ?          QUANTITY:120 MG MILLIGRAM(S);?
     Route: 048
     Dates: start: 20150816, end: 20210112
  4. ELIQUIS [Concomitant]
     Active Substance: APIXABAN
  5. VITAMIN D3 [Concomitant]
     Active Substance: CHOLECALCIFEROL
  6. MAGNESIUM 400MG [Concomitant]
     Active Substance: MAGNESIUM
  7. GLUCOSAMINE SULFATE 1000MG [Concomitant]
  8. OMEGA 3 [Concomitant]
     Active Substance: OMEGA-3 FATTY ACIDS

REACTIONS (12)
  - Dry throat [None]
  - Alopecia [None]
  - Blindness [None]
  - Abdominal distension [None]
  - Decreased appetite [None]
  - Photosensitivity reaction [None]
  - Dyspepsia [None]
  - Skin disorder [None]
  - Headache [None]
  - Dizziness [None]
  - Dry eye [None]
  - Dry mouth [None]

NARRATIVE: CASE EVENT DATE: 20191101
